FAERS Safety Report 21404037 (Version 1)
Quarter: 2022Q4

REPORT INFORMATION
  Report Type: Spontaneous
  Country: US (occurrence: None)
  Receive Date: 20221003
  Receipt Date: 20221003
  Transmission Date: 20230112
  Serious: No
  Sender: FDA-Public Use
  Company Number: None

PATIENT
  Age: 48 Year
  Sex: Female
  Weight: 57.6 kg

DRUGS (2)
  1. ARMODAFINIL [Suspect]
     Active Substance: ARMODAFINIL
     Indication: Hypersomnia
     Dosage: OTHER QUANTITY : 1 TABLET(S);?
     Route: 048
     Dates: start: 20220916
  2. ARMODAFINIL [Suspect]
     Active Substance: ARMODAFINIL
     Indication: Attention deficit hyperactivity disorder

REACTIONS (7)
  - Yawning [None]
  - Vision blurred [None]
  - Irritability [None]
  - Abdominal discomfort [None]
  - Dyspepsia [None]
  - Product substitution issue [None]
  - Drug level below therapeutic [None]

NARRATIVE: CASE EVENT DATE: 20221002
